FAERS Safety Report 4746595-X (Version None)
Quarter: 2005Q3

REPORT INFORMATION
  Report Type: 
  Country: None (occurrence: None)
  Receive Date: 20050815
  Receipt Date: 20050805
  Transmission Date: 20060218
  Serious: No
  Sender: FDA-Public Use
  Company Number: 216722

PATIENT
  Age: 16 Year
  Sex: Male
  Weight: 50.2 kg

DRUGS (3)
  1. NUTROPIN AQ [Suspect]
     Indication: ACUTE LEUKAEMIA
     Dosage: 1 MG, QD, SUBCUTANEOUS
     Route: 058
     Dates: start: 20020430, end: 20050728
  2. SYNTHROID [Concomitant]
  3. TESTOSTERONE [Concomitant]

REACTIONS (1)
  - PAPILLARY THYROID CANCER [None]
